FAERS Safety Report 17940399 (Version 1)
Quarter: 2020Q2

REPORT INFORMATION
  Report Type: Spontaneous
  Country: CN (occurrence: CN)
  Receive Date: 20200625
  Receipt Date: 20200625
  Transmission Date: 20200714
  Serious: Yes (Hospitalization, Other)
  Sender: FDA-Public Use
  Company Number: CN-SA-2020SA159126

PATIENT

DRUGS (11)
  1. ELOXATIN [Suspect]
     Active Substance: OXALIPLATIN
     Indication: GOUT
  2. ELOXATIN [Suspect]
     Active Substance: OXALIPLATIN
     Indication: SPINAL OSTEOARTHRITIS
  3. GLUCOSE [Concomitant]
     Active Substance: DEXTROSE
     Indication: COLON CANCER
     Dosage: 500 ML, QD
     Route: 041
     Dates: start: 20200528, end: 20200528
  4. 5-FU [FLUOROURACIL] [Concomitant]
     Active Substance: FLUOROURACIL
     Dosage: 2400 MG/M2
     Route: 041
  5. GLUCOSE [Concomitant]
     Active Substance: DEXTROSE
     Indication: SPINAL OSTEOARTHRITIS
  6. GLUCOSE [Concomitant]
     Active Substance: DEXTROSE
     Indication: GOUT
  7. 5-FU [FLUOROURACIL] [Concomitant]
     Active Substance: FLUOROURACIL
     Indication: CHEMOTHERAPY
     Dosage: 400 MG/M2
     Route: 041
  8. CALCIUM FOLINATE [Concomitant]
     Active Substance: LEUCOVORIN CALCIUM
     Indication: CHEMOTHERAPY
     Dosage: 400 MG/M2
     Route: 041
  9. ELOXATIN [Suspect]
     Active Substance: OXALIPLATIN
     Indication: INTERVERTEBRAL DISC PROTRUSION
  10. GLUCOSE [Concomitant]
     Active Substance: DEXTROSE
     Indication: INTERVERTEBRAL DISC PROTRUSION
  11. ELOXATIN [Suspect]
     Active Substance: OXALIPLATIN
     Indication: COLON CANCER
     Dosage: 150 MG, QD
     Route: 041
     Dates: start: 20200528, end: 20200528

REACTIONS (5)
  - Rash [Recovering/Resolving]
  - Pruritus [Recovering/Resolving]
  - Tachypnoea [Recovering/Resolving]
  - Blood pressure increased [Recovering/Resolving]
  - Chest discomfort [Recovering/Resolving]

NARRATIVE: CASE EVENT DATE: 20200528
